FAERS Safety Report 19202625 (Version 1)
Quarter: 2021Q2

REPORT INFORMATION
  Report Type: Spontaneous
  Country: US (occurrence: US)
  Receive Date: 20210430
  Receipt Date: 20210430
  Transmission Date: 20210717
  Serious: No
  Sender: FDA-Public Use
  Company Number: US-BAUSCH-BL-2021-010878

PATIENT
  Age: 39 Year
  Sex: Female

DRUGS (2)
  1. TRETINOIN. [Suspect]
     Active Substance: TRETINOIN
     Indication: ACNE
     Dosage: START DATE: 3 WEEKS AGO FROM THE DATE OF THE INITIAL REPORT
     Route: 061
     Dates: start: 202103
  2. TRETINOIN. [Suspect]
     Active Substance: TRETINOIN
     Indication: PREMATURE AGEING

REACTIONS (4)
  - Acne [Recovered/Resolved]
  - Facial pain [Recovered/Resolved]
  - Skin warm [Recovered/Resolved]
  - Rash [Recovered/Resolved]

NARRATIVE: CASE EVENT DATE: 202103
